FAERS Safety Report 6154744-4 (Version None)
Quarter: 2009Q2

REPORT INFORMATION
  Report Type: 
  Country: None (occurrence: None)
  Receive Date: 20090414
  Receipt Date: 20090411
  Transmission Date: 20091009
  Serious: Yes (Hospitalization)
  Sender: FDA-Public Use
  Company Number: Z0000806A

PATIENT
  Age: 61 Year
  Sex: Female
  Weight: 77 kg

DRUGS (2)
  1. TOPOTECAN [Suspect]
     Dosage: 2.3MGM2 CYCLIC
     Route: 048
     Dates: start: 20090325
  2. BEVACIZUMAB [Suspect]
     Dosage: 15MGK CYCLIC
     Route: 042
     Dates: start: 20090325

REACTIONS (7)
  - ANOREXIA [None]
  - DEHYDRATION [None]
  - DIARRHOEA [None]
  - FATIGUE [None]
  - NAUSEA [None]
  - NEUTROPENIC INFECTION [None]
  - VOMITING [None]
